FAERS Safety Report 5103272-3 (Version None)
Quarter: 2006Q3

REPORT INFORMATION
  Report Type: 
  Country: None (occurrence: None)
  Receive Date: 20060908
  Receipt Date: 20060823
  Transmission Date: 20061208
  Serious: Yes (Other)
  Sender: FDA-Public Use
  Company Number: 8018653

PATIENT

DRUGS (1)
  1. KEPPRA [Suspect]

REACTIONS (1)
  - LEUKOPENIA [None]
